FAERS Safety Report 20092181 (Version 1)
Quarter: 2021Q4

REPORT INFORMATION
  Report Type: Spontaneous
  Country: US (occurrence: None)
  Receive Date: 20211119
  Receipt Date: 20211119
  Transmission Date: 20220303
  Serious: Yes (Hospitalization, Other)
  Sender: FDA-Public Use
  Company Number: None

PATIENT
  Age: 88 Year
  Sex: Female
  Weight: 59.4 kg

DRUGS (1)
  1. PROLIA [Suspect]
     Active Substance: DENOSUMAB
     Indication: Osteoporosis
     Dosage: OTHER FREQUENCY : Q 6 MONTHS;?
     Route: 030
     Dates: start: 20210425, end: 20210425

REACTIONS (8)
  - Impaired healing [None]
  - Pain [None]
  - Dehydration [None]
  - Malnutrition [None]
  - Asthenia [None]
  - Confusional state [None]
  - Renal disorder [None]
  - Osteonecrosis of jaw [None]

NARRATIVE: CASE EVENT DATE: 20211017
